FAERS Safety Report 4981824-9 (Version None)
Quarter: 2006Q2

REPORT INFORMATION
  Report Type: 
  Country: None (occurrence: None)
  Receive Date: 20060420
  Receipt Date: 20060420
  Transmission Date: 20061013
  Serious: Yes (Hospitalization)
  Sender: FDA-Public Use
  Company Number: None

PATIENT
  Age: 53 Year
  Sex: Male
  Weight: 67.1324 kg

DRUGS (2)
  1. DOCETAXEL 80 MG INJECTION AVENTIS [Suspect]
     Indication: NEOPLASM MALIGNANT
     Dosage: 84 MG ONCE IVSS
     Route: 042
     Dates: start: 20060309
  2. OXALIPLATIN 100 MG INJECTION SANOFI-SYNTHELABO [Suspect]
     Indication: NEOPLASM MALIGNANT
     Dosage: 187 MG ONCE IVSS
     Route: 042
     Dates: start: 20060309

REACTIONS (2)
  - DYSPHAGIA [None]
  - OBSTRUCTION [None]
